FAERS Safety Report 5098342-2 (Version None)
Quarter: 2006Q3

REPORT INFORMATION
  Report Type: 
  Country: None (occurrence: None)
  Receive Date: 20060907
  Receipt Date: 20060829
  Transmission Date: 20061208
  Serious: Yes (Hospitalization)
  Sender: FDA-Public Use
  Company Number: JP-JNJFOC-20060806845

PATIENT
  Sex: Female
  Weight: 62 kg

DRUGS (15)
  1. REMICADE [Suspect]
     Dosage: DOSE- 3 MG/KG, 6 MG/KG OR 10 MG/KG
     Route: 042
  2. REMICADE [Suspect]
     Dosage: DOSE= 3 MG/KG, 6 MG/KG OR 10 MG/KG
     Route: 042
  3. REMICADE [Suspect]
     Dosage: DOSE= 3 MG/KG, 6 MG/KG OR 10 MG/KG
     Route: 042
  4. REMICADE [Suspect]
     Dosage: DOSE= 3 MG/KG, 6 MG/KG OR 10 MG/KG
     Route: 042
  5. REMICADE [Suspect]
     Route: 042
  6. REMICADE [Suspect]
     Route: 042
  7. REMICADE [Suspect]
     Indication: RHEUMATOID ARTHRITIS
     Route: 042
  8. RHEUMATREX [Concomitant]
     Indication: RHEUMATOID ARTHRITIS
     Route: 048
  9. FOLIAMIN [Concomitant]
     Indication: PROPHYLAXIS
     Route: 048
  10. INDOMETHACIN [Concomitant]
     Indication: RHEUMATOID ARTHRITIS
     Route: 048
  11. GASPORT [Concomitant]
     Indication: PROPHYLAXIS
     Route: 048
  12. PREDNISOLONE [Concomitant]
     Indication: RHEUMATOID ARTHRITIS
     Route: 048
  13. AZULFIDINE EN-TABS [Concomitant]
     Indication: RHEUMATOID ARTHRITIS
     Route: 048
  14. INTEBAN [Concomitant]
     Indication: RHEUMATOID ARTHRITIS
     Route: 061
  15. ISONIAZID [Concomitant]
     Indication: ANTIBIOTIC PROPHYLAXIS
     Route: 048

REACTIONS (2)
  - DIARRHOEA [None]
  - VOMITING [None]
